FAERS Safety Report 24948203 (Version 2)
Quarter: 2025Q1

REPORT INFORMATION
  Report Type: Spontaneous
  Country: CA (occurrence: CA)
  Receive Date: 20250210
  Receipt Date: 20250311
  Transmission Date: 20250408
  Serious: Yes (Other)
  Sender: Unknown Manufacturer
  Company Number: CA-862174955-ML2025-00593

PATIENT
  Age: 63 Year
  Sex: Male

DRUGS (2)
  1. RANOLAZINE [Suspect]
     Active Substance: RANOLAZINE
     Indication: Angina pectoris
     Route: 048
     Dates: start: 20240920, end: 20250218
  2. RANOLAZINE [Suspect]
     Active Substance: RANOLAZINE
     Route: 048
     Dates: start: 2024

REACTIONS (5)
  - Glaucoma [Unknown]
  - Peripheral coldness [Unknown]
  - Dizziness [Unknown]
  - Hypotension [Unknown]
  - Drug ineffective [Unknown]

NARRATIVE: CASE EVENT DATE: 20240101
